FAERS Safety Report 5550920-X (Version None)
Quarter: 2007Q4

REPORT INFORMATION
  Report Type: 
  Country: None (occurrence: None)
  Receive Date: 20071212
  Receipt Date: 20070520
  Transmission Date: 20080405
  Serious: No
  Sender: FDA-Public Use
  Company Number: US-AMGEN-KDL225805

PATIENT
  Sex: Female

DRUGS (2)
  1. ENBREL [Suspect]
     Indication: RHEUMATOID ARTHRITIS
     Route: 058
     Dates: start: 20060201
  2. ARAVA [Concomitant]
     Route: 048
     Dates: start: 20070401

REACTIONS (4)
  - ANAEMIA [None]
  - BLOOD PRESSURE INCREASED [None]
  - INCREASED TENDENCY TO BRUISE [None]
  - PRURITUS GENERALISED [None]
